FAERS Safety Report 24219257 (Version 1)
Quarter: 2024Q3

REPORT INFORMATION
  Report Type: Spontaneous
  Country: US (occurrence: None)
  Receive Date: 20240816
  Receipt Date: 20240816
  Transmission Date: 20241017
  Serious: Yes (Hospitalization)
  Sender: Public
  Company Number: None

PATIENT
  Age: 53 Year
  Sex: Male
  Weight: 101.38 kg

DRUGS (11)
  1. XOLAIR [Suspect]
     Active Substance: OMALIZUMAB
     Indication: Asthma
     Dosage: FREQUENCY : MONTHLY;?
     Route: 058
     Dates: start: 20240227
  2. AZITHROMYCIN [Concomitant]
     Active Substance: AZITHROMYCIN
  3. ALBUTEROL HFA 6.7 G INHALER [Concomitant]
  4. ALBUTEROL 0.083% 30 X 30 ml solution [Concomitant]
  5. PRESIDNOSE 20MG [Concomitant]
  6. METHYLPRENISOOLONE 4MG DOSE PACK [Concomitant]
  7. ibuprophen 600 MG [Concomitant]
  8. TIZANIDINE [Concomitant]
     Active Substance: TIZANIDINE
  9. HYDROCODONE/ACETAMINOPHEN 5MG [Concomitant]
  10. DULERA 200-5MG INHALER [Concomitant]
  11. SYMBICORT 160/4.5 MCG INHALER [Concomitant]

REACTIONS (1)
  - Asthma [None]

NARRATIVE: CASE EVENT DATE: 20240816
